FAERS Safety Report 6242307-1 (Version None)
Quarter: 2009Q2

REPORT INFORMATION
  Report Type: 
  Country: None (occurrence: None)
  Receive Date: 20090624
  Receipt Date: 20090616
  Transmission Date: 20091009
  Serious: Yes (Other)
  Sender: FDA-Public Use
  Company Number: US-BIOGENIDEC-2009BI018733

PATIENT
  Age: 0 Day
  Sex: Female
  Weight: 4 kg

DRUGS (1)
  1. AVONEX [Suspect]
     Indication: DRUG EXPOSURE DURING PREGNANCY
     Route: 064
     Dates: start: 19990101, end: 20020101

REACTIONS (3)
  - BLOOD GLUCOSE ABNORMAL [None]
  - LARGE FOR DATES BABY [None]
  - OXYGEN SATURATION ABNORMAL [None]
